FAERS Safety Report 8221361-1 (Version None)
Quarter: 2012Q1

REPORT INFORMATION
  Report Type: 
  Country: None (occurrence: None)
  Receive Date: 20120320
  Receipt Date: 20120314
  Transmission Date: 20120608
  Serious: Yes (Other)
  Sender: FDA-Public Use
  Company Number: PHEH2012US005901

PATIENT
  Sex: Female

DRUGS (2)
  1. TEGRETOL-XR [Suspect]
     Dosage: 100 MG, QD
     Route: 048
  2. PROBIOTICS [Concomitant]

REACTIONS (3)
  - DYSPNOEA [None]
  - THROAT TIGHTNESS [None]
  - ANXIETY [None]
